FAERS Safety Report 25870832 (Version 2)
Quarter: 2025Q4

REPORT INFORMATION
  Report Type: Report from Study
  Country: EU (occurrence: EU)
  Receive Date: 20251001
  Receipt Date: 20251012
  Transmission Date: 20260117
  Serious: Yes (Other)
  Sender: ABBVIE
  Company Number: EU-ABBVIE-6425596

PATIENT
  Age: 77 Year
  Sex: Female

DRUGS (7)
  1. FOSCARBIDOPA\FOSLEVODOPA [Suspect]
     Active Substance: FOSCARBIDOPA\FOSLEVODOPA
     Indication: Parkinson^s disease
     Dosage: CR HIGH 0.36 ML/H, CR 0.34 ML/H, CR LOW 0.24 ML/H, ED 0.2 ML, ?LAST ADMIN DATE: 2025
     Route: 058
     Dates: start: 20250708
  2. FOSCARBIDOPA\FOSLEVODOPA [Suspect]
     Active Substance: FOSCARBIDOPA\FOSLEVODOPA
     Dosage: CR HIGH 0.38 ML/H, CR 0.36 ML/H, CR LOW 0.26 ML/H, ED 0.2 ML, ?FIRST ADMIN DATE: 2025
     Route: 058
     Dates: end: 20250903
  3. FOSCARBIDOPA\FOSLEVODOPA [Suspect]
     Active Substance: FOSCARBIDOPA\FOSLEVODOPA
     Dosage: CR 0.38ML/H; CR HIGH 0.39ML/H; CR LOW 0.34ML/H; ED 0.20ML, FIRST ADMIN DATE: 03 SEP 2025, LAST AD...
     Route: 058
  4. FOSCARBIDOPA\FOSLEVODOPA [Suspect]
     Active Substance: FOSCARBIDOPA\FOSLEVODOPA
     Dosage: TREATMENT DURATION REDUCED TO 16 H,?FIRST ADMIN DATE: 28 SEP 2025
     Route: 058
     Dates: end: 20250930
  5. QUETIAPINE [Concomitant]
     Active Substance: QUETIAPINE
     Indication: Product used for unknown indication
     Route: 048
  6. BENSERAZIDE HYDROCHLORIDE\LEVODOPA [Concomitant]
     Active Substance: BENSERAZIDE HYDROCHLORIDE\LEVODOPA
     Indication: Product used for unknown indication
  7. SEROQUEL [Suspect]
     Active Substance: QUETIAPINE FUMARATE
     Indication: Product used for unknown indication
     Route: 065
     Dates: start: 20250924

REACTIONS (14)
  - Suicide attempt [Recovered/Resolved]
  - Hypokinesia [Not Recovered/Not Resolved]
  - On and off phenomenon [Recovering/Resolving]
  - Musculoskeletal stiffness [Not Recovered/Not Resolved]
  - Bradykinesia [Recovering/Resolving]
  - Mobility decreased [Not Recovered/Not Resolved]
  - Psychotic disorder [Unknown]
  - Therapeutic product effect incomplete [Not Recovered/Not Resolved]
  - Fall [Recovered/Resolved]
  - Disorientation [Not Recovered/Not Resolved]
  - Hallucination [Not Recovered/Not Resolved]
  - Device difficult to use [Not Recovered/Not Resolved]
  - Patient dissatisfaction with treatment [Unknown]
  - Off label use [Not Recovered/Not Resolved]

NARRATIVE: CASE EVENT DATE: 20250101
